FAERS Safety Report 6101748-3 (Version None)
Quarter: 2009Q1

REPORT INFORMATION
  Report Type: 
  Country: None (occurrence: None)
  Receive Date: 20090304
  Receipt Date: 20090227
  Transmission Date: 20090719
  Serious: Yes (Other)
  Sender: FDA-Public Use
  Company Number: B0561855A

PATIENT
  Age: 74 Year
  Sex: Female

DRUGS (5)
  1. LAMICTAL [Suspect]
     Indication: BIPOLAR DISORDER
     Dosage: 200MG PER DAY
     Route: 048
     Dates: start: 20051122
  2. CHLORIMIPRAMINE [Concomitant]
     Indication: DEPRESSION
     Dosage: 125MG PER DAY
     Route: 065
  3. ALPRAZOLAM [Concomitant]
     Indication: ANXIETY
     Dosage: .5MG PER DAY
     Route: 065
  4. TENORETIC 100 [Concomitant]
     Indication: HYPERTENSION
     Route: 065
  5. NONSTEROIDAL ANTI-INFLAMMATORIES [Concomitant]
     Route: 065

REACTIONS (1)
  - PARKINSONISM [None]
